FAERS Safety Report 18929407 (Version 5)
Quarter: 2021Q3

REPORT INFORMATION
  Report Type: Report from Study
  Country: CL (occurrence: CL)
  Receive Date: 20210223
  Receipt Date: 20210927
  Transmission Date: 20211014
  Serious: Yes (Hospitalization, Other)
  Sender: FDA-Public Use
  Company Number: CL-TAKEDA-2021TUS010352

PATIENT
  Age: 7 Year
  Sex: Male
  Weight: 31 kg

DRUGS (3)
  1. IDURSULFASE [Suspect]
     Active Substance: IDURSULFASE
     Indication: MUCOPOLYSACCHARIDOSIS II
     Dosage: 3 DOSAGE FORM, 1/WEEK
     Route: 042
  2. REPLAGAL [Suspect]
     Active Substance: AGALSIDASE ALFA
     Indication: FABRY^S DISEASE
     Dosage: 0.2 MILLIGRAM/KILOGRAM, Q2WEEKS
     Route: 042
  3. IDURSULFASE [Suspect]
     Active Substance: IDURSULFASE
     Dosage: 0.5 MILLIGRAM/KILOGRAM, 1/WEEK
     Route: 042

REACTIONS (4)
  - Appendicitis [Recovered/Resolved]
  - Generalised tonic-clonic seizure [Recovered/Resolved]
  - Sleep disorder [Recovering/Resolving]
  - Dental caries [Recovering/Resolving]

NARRATIVE: CASE EVENT DATE: 20210214
